FAERS Safety Report 5515795-3 (Version None)
Quarter: 2007Q4

REPORT INFORMATION
  Report Type: 
  Country: None (occurrence: None)
  Receive Date: 20071114
  Receipt Date: 20071025
  Transmission Date: 20080405
  Serious: Yes (Other)
  Sender: FDA-Public Use
  Company Number: DE-ELI_LILLY_AND_COMPANY-DE200711002256

PATIENT
  Sex: Female
  Weight: 4.105 kg

DRUGS (2)
  1. ZYPREXA [Suspect]
     Indication: SCHIZOPHRENIA
     Dosage: 10 MG, DAILY (1/D)
     Route: 064
     Dates: start: 20040801
  2. AKINETON [Concomitant]
     Dosage: UNK, UNKNOWN
     Route: 064

REACTIONS (2)
  - BRACHIAL PLEXOPATHY [None]
  - DRUG EXPOSURE DURING PREGNANCY [None]
